FAERS Safety Report 9255941 (Version 1)
Quarter: 2013Q2

REPORT INFORMATION
  Report Type: Spontaneous
  Country: US (occurrence: US)
  Receive Date: 20130425
  Receipt Date: 20130425
  Transmission Date: 20140414
  Serious: Yes (Other)
  Sender: FDA-Public Use
  Company Number: CHPA2013US006856

PATIENT
  Age: 73 Year
  Sex: Male

DRUGS (1)
  1. EXCEDRIN EXTRA STRENGTH [Suspect]
     Indication: SINUS DISORDER
     Dosage: 2 DF, UNK
     Route: 048
     Dates: start: 2012

REACTIONS (3)
  - Sinus disorder [Recovered/Resolved]
  - Ear disorder [Recovered/Resolved]
  - Off label use [Unknown]
